FAERS Safety Report 10469365 (Version 1)
Quarter: 2014Q3

REPORT INFORMATION
  Report Type: Spontaneous
  Country: US (occurrence: None)
  Receive Date: 20140922
  Receipt Date: 20140922
  Transmission Date: 20150326
  Serious: Yes (Other)
  Sender: FDA-Public Use
  Company Number: None

PATIENT
  Age: 26 Year
  Sex: Female
  Weight: 65.77 kg

DRUGS (1)
  1. DEXTROAMP -AMPHET ER [Suspect]
     Active Substance: AMPHETAMINE SULFATE\DEXTROAMPHETAMINE
     Indication: ATTENTION DEFICIT/HYPERACTIVITY DISORDER
     Dosage: 1 CAPSULE ONCE DAILY
     Dates: start: 20140918, end: 20140920

REACTIONS (8)
  - Somnolence [None]
  - Palpitations [None]
  - Heart rate increased [None]
  - Product substitution issue [None]
  - Disturbance in attention [None]
  - Drug ineffective [None]
  - Hyperhidrosis [None]
  - Cold sweat [None]

NARRATIVE: CASE EVENT DATE: 20140918
